FAERS Safety Report 8272507-0 (Version None)
Quarter: 2012Q2

REPORT INFORMATION
  Report Type: 
  Country: None (occurrence: None)
  Receive Date: 20120410
  Receipt Date: 20120403
  Transmission Date: 20120825
  Serious: Yes (Other)
  Sender: FDA-Public Use
  Company Number: US-FRI-1000029611

PATIENT
  Sex: Female

DRUGS (1)
  1. NAMENDA [Suspect]

REACTIONS (2)
  - DEMENTIA [None]
  - ABDOMINAL PAIN UPPER [None]
